FAERS Safety Report 8073901-3 (Version None)
Quarter: 2012Q1

REPORT INFORMATION
  Report Type: 
  Country: None (occurrence: None)
  Receive Date: 20120126
  Receipt Date: 20120125
  Transmission Date: 20120608
  Serious: Yes (Death, Hospitalization)
  Sender: FDA-Public Use
  Company Number: BE-BAYER-2012-008120

PATIENT
  Age: 91 Year
  Sex: Female

DRUGS (1)
  1. AVELOX [Suspect]
     Indication: RESPIRATORY TRACT INFECTION
     Dosage: 400 MG, QD

REACTIONS (2)
  - DEATH [None]
  - DIARRHOEA [None]
